FAERS Safety Report 21195847 (Version 1)
Quarter: 2022Q3

REPORT INFORMATION
  Report Type: Spontaneous
  Country: US (occurrence: None)
  Receive Date: 20220810
  Receipt Date: 20220810
  Transmission Date: 20221027
  Serious: Yes (Other)
  Sender: FDA-Public Use
  Company Number: None

PATIENT
  Age: 63 Year
  Sex: Male
  Weight: 92.25 kg

DRUGS (5)
  1. ROCKLATAN [Suspect]
     Active Substance: LATANOPROST\NETARSUDIL MESYLATE
     Indication: Glaucoma
     Dosage: FREQUENCY : AT BEDTIME;?
     Route: 047
  2. NAPROXEN [Concomitant]
     Active Substance: NAPROXEN
  3. CLONAZEPAM [Concomitant]
     Active Substance: CLONAZEPAM
  4. LOSARTAN [Concomitant]
     Active Substance: LOSARTAN
  5. NUMEROUS [Concomitant]

REACTIONS (6)
  - Eye pruritus [None]
  - Ocular hyperaemia [None]
  - Eye irritation [None]
  - Heart rate abnormal [None]
  - Visual acuity reduced [None]
  - Dry eye [None]

NARRATIVE: CASE EVENT DATE: 20220806
